FAERS Safety Report 21535061 (Version 1)
Quarter: 2022Q4

REPORT INFORMATION
  Report Type: Spontaneous
  Country: US (occurrence: None)
  Receive Date: 20221031
  Receipt Date: 20221031
  Transmission Date: 20230113
  Serious: Yes (unspecified)
  Sender: FDA-Public Use
  Company Number: None

PATIENT
  Age: 37 Year
  Sex: Female
  Weight: 64.8 kg

DRUGS (1)
  1. VYEPTI [Suspect]
     Active Substance: EPTINEZUMAB-JJMR

REACTIONS (6)
  - Infusion related reaction [None]
  - Cough [None]
  - Chest discomfort [None]
  - Dyspnoea [None]
  - Dizziness [None]
  - Refusal of treatment by patient [None]

NARRATIVE: CASE EVENT DATE: 20221028
